FAERS Safety Report 5707226-5 (Version None)
Quarter: 2008Q2

REPORT INFORMATION
  Report Type: 
  Country: None (occurrence: None)
  Receive Date: 20080415
  Receipt Date: 20080415
  Transmission Date: 20081010
  Serious: Yes (Hospitalization)
  Sender: FDA-Public Use
  Company Number: None

PATIENT
  Age: 44 Year
  Sex: Female
  Weight: 111.2 kg

DRUGS (1)
  1. CARBAMAZEPINE [Suspect]
     Indication: DEPRESSION
     Dosage: 600MG HS PO
     Route: 048
     Dates: start: 20080307, end: 20080318

REACTIONS (6)
  - ALANINE AMINOTRANSFERASE INCREASED [None]
  - ASPARTATE AMINOTRANSFERASE INCREASED [None]
  - HEADACHE [None]
  - PANCREATITIS [None]
  - PYREXIA [None]
  - THROMBOCYTOPENIA [None]
